FAERS Safety Report 18372379 (Version 36)
Quarter: 2023Q1

REPORT INFORMATION
  Report Type: Report from Study
  Country: GB (occurrence: GB)
  Receive Date: 20201012
  Receipt Date: 20230215
  Transmission Date: 20230417
  Serious: Yes (Hospitalization, Other)
  Sender: FDA-Public Use
  Company Number: GB-ROCHE-2606410

PATIENT
  Age: 54 Year
  Sex: Female
  Weight: 63.5 kg

DRUGS (81)
  1. CARBOPLATIN [Suspect]
     Active Substance: CARBOPLATIN
     Indication: Non-small cell lung cancer metastatic
     Dosage: UNK
     Route: 065
  2. CARBOPLATIN [Suspect]
     Active Substance: CARBOPLATIN
     Dosage: UNK
     Route: 065
  3. ETOPOSIDE [Suspect]
     Active Substance: ETOPOSIDE
     Indication: Neoplasm malignant
     Dosage: UNK
     Route: 065
  4. ETOPOSIDE [Suspect]
     Active Substance: ETOPOSIDE
     Indication: Non-small cell lung cancer
     Dosage: 40 MILLIGRAM
     Route: 065
     Dates: start: 20200212, end: 20200212
  5. ETOPOSIDE [Suspect]
     Active Substance: ETOPOSIDE
     Indication: Non-small cell lung cancer metastatic
     Dosage: ADDITIONAL INFO: 04-FEB-2020
     Route: 065
  6. ETOPOSIDE [Suspect]
     Active Substance: ETOPOSIDE
     Dosage: UNK
     Route: 065
  7. PACLITAXEL [Suspect]
     Active Substance: PACLITAXEL
     Indication: Neoplasm malignant
     Dosage: UNK
     Route: 065
  8. PACLITAXEL [Suspect]
     Active Substance: PACLITAXEL
     Indication: Non-small cell lung cancer
     Dosage: 10 MILLIGRAM
     Route: 065
     Dates: start: 20200325, end: 20200325
  9. PACLITAXEL [Suspect]
     Active Substance: PACLITAXEL
     Indication: Non-small cell lung cancer metastatic
     Dosage: 10 MILLIGRAM (MOST RECENT DOSE 25 MAR 2020)
     Route: 065
     Dates: start: 20200325
  10. ATEZOLIZUMAB [Suspect]
     Active Substance: ATEZOLIZUMAB
     Indication: Non-small cell lung cancer metastatic
     Dosage: 1200 MILLIGRAM, Q3W
     Route: 042
     Dates: start: 20200204
  11. ATEZOLIZUMAB [Suspect]
     Active Substance: ATEZOLIZUMAB
     Indication: Neoplasm malignant
     Dosage: 1200 MILLIGRAM, 3XW
     Route: 042
     Dates: start: 20200204
  12. ATEZOLIZUMAB [Suspect]
     Active Substance: ATEZOLIZUMAB
     Dosage: 1200 MILLIGRAM, Q3W
     Route: 042
     Dates: start: 20200212, end: 20200415
  13. ATEZOLIZUMAB [Suspect]
     Active Substance: ATEZOLIZUMAB
     Dosage: 1200 MILLIGRAM, Q3WK
     Route: 042
     Dates: start: 20200304
  14. ATEZOLIZUMAB [Suspect]
     Active Substance: ATEZOLIZUMAB
     Dosage: 1200 MILLIGRAM, Q3W
     Route: 042
     Dates: start: 20200312
  15. ATEZOLIZUMAB [Suspect]
     Active Substance: ATEZOLIZUMAB
     Dosage: 1200 MILLIGRAM, Q3WK
     Route: 042
     Dates: start: 20200325, end: 20200415
  16. ATEZOLIZUMAB [Suspect]
     Active Substance: ATEZOLIZUMAB
     Dosage: 1200 MILLIGRAM, Q3WK
     Route: 042
     Dates: start: 20200415
  17. ATEZOLIZUMAB [Suspect]
     Active Substance: ATEZOLIZUMAB
     Dosage: 1200 MILLIGRAM, Q3WK
     Route: 042
     Dates: start: 20200513, end: 20200715
  18. ATEZOLIZUMAB [Suspect]
     Active Substance: ATEZOLIZUMAB
     Dosage: 1200 MILLIGRAM, Q3WK
     Route: 042
     Dates: start: 20200603
  19. ATEZOLIZUMAB [Suspect]
     Active Substance: ATEZOLIZUMAB
     Dosage: 1200 MILLIGRAM, Q3WK
     Route: 042
     Dates: start: 20200624
  20. ATEZOLIZUMAB [Suspect]
     Active Substance: ATEZOLIZUMAB
     Dosage: 1200 MILLIGRAM, Q3W
     Route: 042
     Dates: start: 20200805
  21. ATEZOLIZUMAB [Suspect]
     Active Substance: ATEZOLIZUMAB
     Dosage: 1200 MILLIGRAM, Q3WK
     Route: 042
     Dates: start: 20200826
  22. ATEZOLIZUMAB [Suspect]
     Active Substance: ATEZOLIZUMAB
     Dosage: 1200 MILLIGRAM, Q3WK
     Route: 042
     Dates: start: 20200916
  23. ATEZOLIZUMAB [Suspect]
     Active Substance: ATEZOLIZUMAB
     Dosage: 1200 MILLIGRAM, Q3WK
     Route: 042
     Dates: start: 20200715
  24. ATEZOLIZUMAB [Suspect]
     Active Substance: ATEZOLIZUMAB
     Dosage: 1200 MG, Q3W,16-SEP-2020
     Route: 042
     Dates: end: 20200715
  25. ATEZOLIZUMAB [Suspect]
     Active Substance: ATEZOLIZUMAB
     Dosage: 1200 MILLIGRAM, Q3W
     Route: 042
  26. ATEZOLIZUMAB [Suspect]
     Active Substance: ATEZOLIZUMAB
     Dosage: 1200 MILLIGRAM, Q3WK
     Route: 042
     Dates: start: 20200212, end: 20200415
  27. ATEZOLIZUMAB [Suspect]
     Active Substance: ATEZOLIZUMAB
     Dosage: 1200 MILLIGRAM, Q3WK
     Route: 042
     Dates: start: 20200603
  28. ATEZOLIZUMAB [Suspect]
     Active Substance: ATEZOLIZUMAB
     Dosage: 1200 MILLIGRAM, Q3WK
     Route: 042
     Dates: start: 20200624
  29. ATEZOLIZUMAB [Suspect]
     Active Substance: ATEZOLIZUMAB
     Dosage: 1200 MILLIGRAM, 3XW
     Route: 042
     Dates: start: 20200805
  30. ATEZOLIZUMAB [Suspect]
     Active Substance: ATEZOLIZUMAB
     Dosage: 1200 MILLIGRAM, Q3W
     Route: 042
     Dates: start: 20200916
  31. BEVACIZUMAB [Suspect]
     Active Substance: BEVACIZUMAB
     Indication: Neoplasm malignant
     Dosage: UNK
     Route: 042
  32. BEVACIZUMAB [Suspect]
     Active Substance: BEVACIZUMAB
     Indication: Non-small cell lung cancer
     Dosage: UNK
     Route: 042
  33. BEVACIZUMAB [Suspect]
     Active Substance: BEVACIZUMAB
     Indication: Non-small cell lung cancer metastatic
     Dosage: UNK
     Route: 042
  34. BEVACIZUMAB [Suspect]
     Active Substance: BEVACIZUMAB
     Dosage: INTRAVENOUS DRIP
     Route: 042
  35. FILGRASTIM [Suspect]
     Active Substance: FILGRASTIM
     Indication: Non-small cell lung cancer
     Dosage: UNK
     Route: 065
     Dates: start: 20200512, end: 20200515
  36. FILGRASTIM [Suspect]
     Active Substance: FILGRASTIM
     Indication: Non-small cell lung cancer metastatic
     Dosage: UNK
     Route: 065
     Dates: start: 20200512, end: 20200512
  37. FILGRASTIM [Suspect]
     Active Substance: FILGRASTIM
     Indication: White blood cell count decreased
     Dosage: UNK
     Route: 065
     Dates: start: 20200513, end: 20200515
  38. FILGRASTIM [Suspect]
     Active Substance: FILGRASTIM
     Dosage: UNK
     Route: 065
     Dates: start: 20200513
  39. PROLIA [Suspect]
     Active Substance: DENOSUMAB
     Indication: Bone pain
     Dosage: UNK
     Route: 065
  40. PROLIA [Suspect]
     Active Substance: DENOSUMAB
     Indication: Non-small cell lung cancer metastatic
     Dosage: UNK
     Route: 065
     Dates: start: 20200204
  41. PROLIA [Suspect]
     Active Substance: DENOSUMAB
     Dosage: UNK
     Route: 065
     Dates: start: 20200803
  42. FAMOTIDINE [Suspect]
     Active Substance: FAMOTIDINE
     Indication: Product used for unknown indication
     Dosage: 40 MILLIGRAM, QD
     Route: 065
     Dates: start: 20200212, end: 20200212
  43. FAMOTIDINE [Suspect]
     Active Substance: FAMOTIDINE
     Dosage: UNK
     Route: 065
     Dates: start: 20200212
  44. FAMOTIDINE [Suspect]
     Active Substance: FAMOTIDINE
     Dosage: UNK
     Route: 065
     Dates: start: 20200513, end: 20200513
  45. FAMOTIDINE [Suspect]
     Active Substance: FAMOTIDINE
     Indication: White blood cell count decreased
     Dosage: 40 MILLIGRAM
     Route: 065
     Dates: start: 20200212, end: 20200212
  46. FAMOTIDINE [Suspect]
     Active Substance: FAMOTIDINE
     Indication: Non-small cell lung cancer metastatic
     Dosage: UNK
     Route: 065
     Dates: start: 20200512, end: 20200515
  47. FAMOTIDINE [Suspect]
     Active Substance: FAMOTIDINE
     Dosage: UNK
     Route: 065
     Dates: start: 20200513, end: 20200515
  48. GRANULOCYTE COLONY-STIMULATING FACTOR NOS [Suspect]
     Active Substance: GRANULOCYTE COLONY-STIMULATING FACTOR NOS
     Indication: White blood cell count decreased
     Dosage: UNK
     Route: 065
     Dates: end: 20200515
  49. BEVACIZUMAB [Suspect]
     Active Substance: BEVACIZUMAB
     Indication: Neoplasm malignant
     Dosage: UNK
     Route: 065
  50. BEVACIZUMAB [Suspect]
     Active Substance: BEVACIZUMAB
     Indication: Non-small cell lung cancer metastatic
  51. FAMOTIDINE [Concomitant]
     Active Substance: FAMOTIDINE
     Indication: Non-small cell lung cancer metastatic
     Dosage: 40 MILLIGRAM, QD
     Route: 065
     Dates: start: 20200212, end: 20200212
  52. FAMOTIDINE [Concomitant]
     Active Substance: FAMOTIDINE
     Dosage: 40 MILLIGRAM
     Route: 065
     Dates: start: 20200212
  53. DEXAMETHASONE [Concomitant]
     Active Substance: DEXAMETHASONE
     Indication: Nausea
     Dosage: 20 MILLIGRAM
     Route: 065
     Dates: start: 20200212, end: 20200212
  54. DEXAMETHASONE [Concomitant]
     Active Substance: DEXAMETHASONE
     Dosage: 20 MILLIGRAM
     Route: 065
     Dates: start: 20200304, end: 20200304
  55. DEXAMETHASONE [Concomitant]
     Active Substance: DEXAMETHASONE
     Dosage: 20 MILLIGRAM
     Route: 065
     Dates: start: 20200325, end: 20200325
  56. DEXAMETHASONE [Concomitant]
     Active Substance: DEXAMETHASONE
     Dosage: 1 MG EVERY DAY
     Route: 065
     Dates: start: 20200504, end: 20200504
  57. DEXAMETHASONE [Concomitant]
     Active Substance: DEXAMETHASONE
     Dosage: 1 DOSAGE FORM, QD (1X/DAY)
     Route: 065
     Dates: start: 20200504, end: 20200504
  58. DEXAMETHASONE [Concomitant]
     Active Substance: DEXAMETHASONE
     Dosage: 20 MILLIGRAM
     Route: 065
     Dates: start: 20200212, end: 20200325
  59. MORPHINE [Concomitant]
     Active Substance: MORPHINE
     Indication: Pain in extremity
     Dosage: UNK
     Route: 065
     Dates: start: 20200829
  60. DENOSUMAB [Concomitant]
     Active Substance: DENOSUMAB
     Indication: Bone pain
     Dosage: UNK
     Route: 065
  61. DENOSUMAB [Concomitant]
     Active Substance: DENOSUMAB
     Dosage: UNK
     Route: 065
     Dates: start: 20200803
  62. CYCLIZINE [Concomitant]
     Active Substance: CYCLIZINE
     Indication: Nausea
     Dosage: UNK, PRN
     Route: 065
     Dates: start: 20190524
  63. CYCLIZINE [Concomitant]
     Active Substance: CYCLIZINE
     Dosage: 1 DOSAGE FORM, PRN
     Route: 065
     Dates: start: 20200811
  64. RANITIDINE [Concomitant]
     Active Substance: RANITIDINE
     Dosage: 50 MILLIGRAM
     Route: 065
     Dates: start: 20200304, end: 20200304
  65. RANITIDINE [Concomitant]
     Active Substance: RANITIDINE
     Dosage: 50 MILLIGRAM
     Route: 065
     Dates: start: 20200304, end: 20200325
  66. RANITIDINE [Concomitant]
     Active Substance: RANITIDINE
     Dosage: 50 MILLIGRAM
     Route: 065
     Dates: start: 20200325, end: 20200325
  67. CHLORPHENIRAMINE MALEATE [Concomitant]
     Active Substance: CHLORPHENIRAMINE MALEATE
     Dosage: 10 MILLIGRAM
     Route: 065
     Dates: start: 20200304, end: 20200304
  68. CHLORPHENIRAMINE MALEATE [Concomitant]
     Active Substance: CHLORPHENIRAMINE MALEATE
     Dosage: 10 MILLIGRAM
     Route: 065
     Dates: start: 20200325, end: 20200325
  69. LOPERAMIDE [Concomitant]
     Active Substance: LOPERAMIDE
     Indication: Diarrhoea
     Dosage: (START DATE: 01-JUN-2020)
     Route: 065
  70. LOPERAMIDE [Concomitant]
     Active Substance: LOPERAMIDE
     Dosage: UNK
     Route: 065
     Dates: start: 20200601
  71. ONDANSETRON [Concomitant]
     Active Substance: ONDANSETRON
     Dosage: 8 MILLIGRAM
     Route: 065
     Dates: start: 20200212, end: 20200212
  72. METOCLOPRAMIDE [Concomitant]
     Active Substance: METOCLOPRAMIDE
     Indication: Vomiting
     Dosage: (START DATE: 11-MAY-2020)
     Route: 048
  73. METOCLOPRAMIDE [Concomitant]
     Active Substance: METOCLOPRAMIDE
     Dosage: UNK
     Route: 048
     Dates: start: 20200511, end: 20200511
  74. PREDNISOLONE [Concomitant]
     Active Substance: PREDNISOLONE
     Indication: Hepatic failure
     Dosage: 50 MILLIGRAM, QD (START DATE: 25-MAR-2020)
     Route: 065
     Dates: end: 20200325
  75. PREDNISOLONE [Concomitant]
     Active Substance: PREDNISOLONE
     Dosage: UNK, 1X/DAY
     Route: 065
     Dates: start: 20200921, end: 20200925
  76. PREDNISOLONE [Concomitant]
     Active Substance: PREDNISOLONE
     Dosage: 1 DOSAGE FORM, QD
     Route: 065
     Dates: start: 20200926, end: 20201005
  77. PREDNISOLONE [Concomitant]
     Active Substance: PREDNISOLONE
     Dosage: 1 DOSAGE FORM, QD
     Route: 065
     Dates: start: 20200921, end: 20200925
  78. PREDNISOLONE [Concomitant]
     Active Substance: PREDNISOLONE
     Dosage: 1 DOSAGE FORM, QD
     Route: 065
     Dates: start: 20200921, end: 20201005
  79. FAMOTIDINE [Concomitant]
     Active Substance: FAMOTIDINE
     Indication: Diarrhoea
     Dosage: 40 MILLIGRAM
     Route: 065
     Dates: start: 20200212, end: 20200212
  80. FAMOTIDINE [Concomitant]
     Active Substance: FAMOTIDINE
     Dosage: 40 MILLIGRAM
     Route: 065
     Dates: end: 20200212
  81. FAMOTIDINE [Concomitant]
     Active Substance: FAMOTIDINE
     Dosage: UNK
     Route: 065
     Dates: end: 20200601

REACTIONS (24)
  - Autoimmune haemolytic anaemia [Recovering/Resolving]
  - Hepatic failure [Not Recovered/Not Resolved]
  - Malignant neoplasm progression [Unknown]
  - Ear pain [Not Recovered/Not Resolved]
  - Fatigue [Not Recovered/Not Resolved]
  - Haemoglobin decreased [Recovered/Resolved]
  - Neuropathy peripheral [Unknown]
  - Platelet count decreased [Unknown]
  - Intentional product use issue [Unknown]
  - White blood cell count decreased [Recovered/Resolved]
  - Product use in unapproved indication [Unknown]
  - Vomiting [Recovering/Resolving]
  - Mucosal inflammation [Not Recovered/Not Resolved]
  - Diarrhoea [Unknown]
  - Abdominal pain upper [Not Recovered/Not Resolved]
  - Bone pain [Not Recovered/Not Resolved]
  - Pain in extremity [Unknown]
  - Blood magnesium decreased [Recovering/Resolving]
  - Weight decreased [Recovered/Resolved]
  - Nausea [Not Recovered/Not Resolved]
  - Disease progression [Unknown]
  - Decreased appetite [Not Recovered/Not Resolved]
  - Anaemia [Recovered/Resolved]
  - Off label use [Unknown]

NARRATIVE: CASE EVENT DATE: 20200213
